FAERS Safety Report 6368346-8 (Version None)
Quarter: 2009Q3

REPORT INFORMATION
  Report Type: 
  Country: None (occurrence: None)
  Receive Date: 20090922
  Receipt Date: 20090909
  Transmission Date: 20100115
  Serious: Yes (Disabling)
  Sender: FDA-Public Use
  Company Number: IT-PFIZER INC-2009241780

PATIENT
  Age: 56 Year

DRUGS (2)
  1. SUTENT [Suspect]
     Indication: RENAL CELL CARCINOMA
     Dosage: 1 UNIT DOSE, DAILY
     Route: 048
     Dates: start: 20070301, end: 20090716
  2. ZOMETA [Suspect]
     Indication: RENAL CELL CARCINOMA
     Dosage: 1 UNIT DOSE, MONTHLY
     Route: 042
     Dates: start: 20070301, end: 20090401

REACTIONS (1)
  - OSTEONECROSIS [None]
